FAERS Safety Report 6621870-2 (Version None)
Quarter: 2010Q1

REPORT INFORMATION
  Report Type: 
  Country: None (occurrence: None)
  Receive Date: 20100304
  Receipt Date: 20100217
  Transmission Date: 20100710
  Serious: Yes (Other)
  Sender: FDA-Public Use
  Company Number: ACO_00623_2009

PATIENT
  Sex: Female

DRUGS (3)
  1. TIZANIDINE HYDROCHLORIDE [Suspect]
     Indication: MUSCULOSKELETAL STIFFNESS
     Dosage: (1 MG, FREQUENCY UNKNOWN ORAL)
     Route: 048
     Dates: start: 20091014, end: 20091124
  2. ETODOLAC [Suspect]
     Indication: MUSCULOSKELETAL STIFFNESS
     Dosage: (DF ORAL)
     Route: 048
     Dates: end: 20091124
  3. MUCOSTA (MUCOSTA - REBAMIPIDE) (NOT SPECIFIED) [Suspect]
     Indication: DRUG USE FOR UNKNOWN INDICATION
     Dosage: (DF ORAL)
     Route: 048
     Dates: end: 20091124

REACTIONS (2)
  - CHEST PAIN [None]
  - TACHYCARDIA [None]
